FAERS Safety Report 6810752-9 (Version None)
Quarter: 2010Q2

REPORT INFORMATION
  Report Type: 
  Country: None (occurrence: None)
  Receive Date: 20100630
  Receipt Date: 20071212
  Transmission Date: 20101027
  Serious: No
  Sender: FDA-Public Use
  Company Number: US-PFIZER INC-2007090248

PATIENT
  Age: 86 Year
  Sex: Female

DRUGS (1)
  1. ESTRING [Suspect]

REACTIONS (6)
  - ANXIETY [None]
  - CONSTIPATION [None]
  - DEPRESSION [None]
  - FEELING ABNORMAL [None]
  - NAUSEA [None]
  - NERVOUSNESS [None]
